APPROVED DRUG PRODUCT: BICILLIN C-R
Active Ingredient: PENICILLIN G BENZATHINE; PENICILLIN G PROCAINE
Strength: 150,000 UNITS/ML;150,000 UNITS/ML
Dosage Form/Route: INJECTABLE;INJECTION
Application: N050138 | Product #002
Applicant: KING PHARMACEUTICALS LLC
Approved: Approved Prior to Jan 1, 1982 | RLD: Yes | RS: No | Type: DISCN